FAERS Safety Report 13106927 (Version 1)
Quarter: 2017Q1

REPORT INFORMATION
  Report Type: Report from Study
  Country: FR (occurrence: FR)
  Receive Date: 20170111
  Receipt Date: 20170111
  Transmission Date: 20170428
  Serious: Yes (Hospitalization, Other)
  Sender: FDA-Public Use
  Company Number: FR-TAKEDA-2016MPI005773

PATIENT
  Age: 57 Year
  Sex: Female
  Weight: 76 kg

DRUGS (30)
  1. VALSARTAN. [Concomitant]
     Active Substance: VALSARTAN
     Indication: HYPERTENSION
     Dosage: UNK
     Route: 065
     Dates: start: 2010
  2. LEDERFOLINE [Concomitant]
     Active Substance: LEUCOVORIN CALCIUM
     Dosage: UNK
     Route: 065
     Dates: start: 20151107
  3. BICARBONATE [Concomitant]
     Active Substance: BICARBONATE ION
     Dosage: UNK, QID
     Route: 065
  4. FLUCONAZOLE. [Concomitant]
     Active Substance: FLUCONAZOLE
     Dosage: 200 MG, QID
     Route: 042
     Dates: start: 20160616, end: 20160616
  5. PRIMPERAN [Concomitant]
     Active Substance: METOCLOPRAMIDE HYDROCHLORIDE
     Indication: NAUSEA
     Dosage: 10 MG, UNK
     Route: 065
  6. DEXAMETHASONE. [Suspect]
     Active Substance: DEXAMETHASONE
     Indication: PLASMA CELL MYELOMA
     Dosage: 20 MG, UNK
     Route: 048
     Dates: start: 20151109, end: 20160216
  7. AUGMENTIN [Concomitant]
     Active Substance: AMOXICILLIN\CLAVULANATE POTASSIUM
     Dosage: UNK
     Route: 065
     Dates: start: 20160530, end: 20160607
  8. DARATUMUMAB [Suspect]
     Active Substance: DARATUMUMAB
     Indication: PLASMA CELL MYELOMA
     Dosage: UNK
     Route: 042
  9. ZELITREX [Concomitant]
     Active Substance: VALACYCLOVIR HYDROCHLORIDE
     Dosage: UNK
     Route: 065
     Dates: start: 20151109
  10. ZOMETA [Concomitant]
     Active Substance: ZOLEDRONIC ACID
     Dosage: UNK
     Route: 065
     Dates: start: 20151109
  11. ALLOPURINOL                        /00003302/ [Concomitant]
     Active Substance: ALLOPURINOL
     Dosage: 200 MG, QD
     Route: 048
  12. TRAMADOL. [Concomitant]
     Active Substance: TRAMADOL
     Indication: PAIN
     Dosage: 50 MG, UNK
     Route: 065
  13. LASILIX                            /00032601/ [Concomitant]
     Active Substance: FUROSEMIDE
     Dosage: 80 MG, QD
     Route: 065
  14. DEXAMETHASONE. [Suspect]
     Active Substance: DEXAMETHASONE
     Dosage: 40 MG, UNK
     Route: 048
     Dates: start: 20151109, end: 20160216
  15. ATROVENT [Concomitant]
     Active Substance: IPRATROPIUM BROMIDE
     Dosage: 0.5 MG, TID
     Route: 065
  16. GLUCOSE [Concomitant]
     Active Substance: DEXTROSE
     Dosage: 500 ML, QD
     Route: 042
  17. BISOCE [Concomitant]
     Active Substance: BISOPROLOL
     Dosage: 2.5 MG, UNK
     Route: 065
  18. THALIDOMIDE [Suspect]
     Active Substance: THALIDOMIDE
     Indication: PLASMA CELL MYELOMA
     Dosage: 100 MG, UNK
     Route: 048
     Dates: start: 20151109, end: 20160228
  19. BACTRIM [Concomitant]
     Active Substance: SULFAMETHOXAZOLE\TRIMETHOPRIM
     Dosage: UNK
     Route: 065
     Dates: start: 20151108
  20. FLUCONAZOLE. [Concomitant]
     Active Substance: FLUCONAZOLE
     Dosage: 200 MG, BID
     Dates: start: 20160617
  21. TAZOCILLINE [Concomitant]
     Active Substance: PIPERACILLIN SODIUM\TAZOBACTAM SODIUM
     Dosage: 4 G, TID
     Route: 042
  22. FORTIMEL [Concomitant]
     Active Substance: DIETARY SUPPLEMENT
     Route: 065
  23. CALCITE D [Concomitant]
     Active Substance: CALCIUM CARBONATE
     Dosage: 500 MG, BID
     Route: 065
     Dates: start: 20151109
  24. BRICANYL [Concomitant]
     Active Substance: TERBUTALINE SULFATE
     Dosage: 5 MG, TID
     Route: 065
  25. FOSITEN [Concomitant]
     Dosage: UNK, QD
     Route: 042
  26. CALCIUM CHLORIDE. [Concomitant]
     Active Substance: CALCIUM CHLORIDE
     Dosage: 1 G, QD
     Route: 042
  27. TIORFAN [Concomitant]
     Active Substance: RACECADOTRIL
     Dosage: 100 MG, UNK
     Route: 065
  28. VELCADE [Suspect]
     Active Substance: BORTEZOMIB
     Indication: PLASMA CELL MYELOMA
     Dosage: 2.5 MG, UNK
     Route: 058
     Dates: start: 20151109
  29. INNOHEP [Concomitant]
     Active Substance: TINZAPARIN SODIUM
     Dosage: 0.7 ML, QD
     Route: 058
     Dates: start: 20151110
  30. POTASSIUM CHLORIDE. [Concomitant]
     Active Substance: POTASSIUM CHLORIDE
     Dosage: 1 G, QD
     Route: 042

REACTIONS (2)
  - Lung disorder [Not Recovered/Not Resolved]
  - Cardiac disorder [Recovering/Resolving]

NARRATIVE: CASE EVENT DATE: 20160610
